FAERS Safety Report 19975110 (Version 2)
Quarter: 2022Q4

REPORT INFORMATION
  Report Type: Spontaneous
  Country: CA (occurrence: None)
  Receive Date: 20211020
  Receipt Date: 20221109
  Transmission Date: 20230113
  Serious: Yes (Hospitalization)
  Sender: FDA-Public Use
  Company Number: 2021A774779

PATIENT
  Sex: Male
  Weight: 3 kg

DRUGS (5)
  1. QUETIAPINE [Suspect]
     Active Substance: QUETIAPINE
     Indication: Anxiety
     Route: 048
  2. CITALOPRAM [Suspect]
     Active Substance: CITALOPRAM HYDROBROMIDE
     Indication: Anxiety
     Route: 048
  3. CANNABIS SATIVA SUBSP. INDICA TOP [Concomitant]
     Active Substance: CANNABIS SATIVA SUBSP. INDICA TOP
  4. INSULIN HUMAN [Concomitant]
     Active Substance: INSULIN HUMAN
     Dosage: 10 PLUS 26 IU
     Route: 058
  5. NICOTINE [Concomitant]
     Active Substance: NICOTINE

REACTIONS (8)
  - Agitation neonatal [Recovered/Resolved]
  - Finnegan score increased [Recovered/Resolved]
  - Floppy infant [Recovered/Resolved]
  - Infant irritability [Recovered/Resolved]
  - Nausea [Recovered/Resolved]
  - Neonatal hypoxia [Recovered/Resolved]
  - Tremor [Recovered/Resolved]
  - Drug withdrawal syndrome neonatal [Recovered/Resolved]

NARRATIVE: CASE EVENT DATE: 20201224
